FAERS Safety Report 15682088 (Version 2)
Quarter: 2025Q1

REPORT INFORMATION
  Report Type: Spontaneous
  Country: AU (occurrence: AU)
  Receive Date: 20181203
  Receipt Date: 20250109
  Transmission Date: 20250409
  Serious: Yes (Other)
  Sender: MERCK
  Company Number: AU-009507513-1803AUS008827

PATIENT

DRUGS (1)
  1. PEMBROLIZUMAB [Suspect]
     Active Substance: PEMBROLIZUMAB
     Indication: Squamous cell carcinoma of head and neck

REACTIONS (5)
  - Immune-mediated adverse reaction [Recovering/Resolving]
  - Malignant neoplasm progression [Unknown]
  - Polyarthritis [Recovering/Resolving]
  - Type 1 diabetes mellitus [Recovering/Resolving]
  - Therapy partial responder [Unknown]
